FAERS Safety Report 6241606-7 (Version None)
Quarter: 2009Q2

REPORT INFORMATION
  Report Type: 
  Country: None (occurrence: None)
  Receive Date: 20090623
  Receipt Date: 20050926
  Transmission Date: 20091009
  Serious: Yes (Hospitalization)
  Sender: FDA-Public Use
  Company Number: DE-ROCHE-447115

PATIENT
  Sex: Female

DRUGS (44)
  1. DACLIZUMAB [Suspect]
     Dosage: BASELINE VISIT
     Route: 042
     Dates: start: 20040906
  2. DACLIZUMAB [Suspect]
     Dosage: FOR FOUR DOSES
     Route: 042
     Dates: start: 20040920
  3. MYCOPHENOLATE MOFETIL [Suspect]
     Route: 048
     Dates: start: 20040906
  4. MYCOPHENOLATE MOFETIL [Suspect]
     Route: 048
     Dates: start: 20041109, end: 20041118
  5. TACROLIMUS [Suspect]
     Route: 048
     Dates: start: 20040906
  6. TACROLIMUS [Suspect]
     Route: 048
     Dates: start: 20040907
  7. TACROLIMUS [Suspect]
     Route: 048
     Dates: start: 20040910
  8. TACROLIMUS [Suspect]
     Route: 048
     Dates: start: 20040911
  9. TACROLIMUS [Suspect]
     Route: 048
     Dates: start: 20040916
  10. TACROLIMUS [Suspect]
     Route: 048
     Dates: start: 20040921
  11. TACROLIMUS [Suspect]
     Route: 048
     Dates: start: 20040922, end: 20050425
  12. TACROLIMUS [Suspect]
     Route: 048
     Dates: start: 20050426, end: 20060410
  13. TACROLIMUS [Suspect]
     Route: 048
     Dates: start: 20060311, end: 20070305
  14. TACROLIMUS [Suspect]
     Route: 048
     Dates: start: 20070306
  15. PREDNISOLONE [Suspect]
     Route: 048
     Dates: start: 20040117, end: 20040905
  16. PREDNISOLONE [Suspect]
     Route: 048
     Dates: start: 20040907, end: 20040907
  17. PREDNISOLONE [Suspect]
     Route: 048
     Dates: start: 20040908, end: 20040909
  18. PREDNISOLONE [Suspect]
     Route: 048
     Dates: start: 20040910, end: 20050116
  19. PREDNISOLONE [Suspect]
     Route: 048
     Dates: start: 20050117, end: 20070302
  20. PREDNISOLONE [Suspect]
     Route: 048
     Dates: start: 20070303
  21. PREDNISOLONE [Suspect]
     Route: 042
     Dates: start: 20040906
  22. PREDNISOLONE [Suspect]
     Route: 042
     Dates: start: 20040907
  23. MYFORTIC [Suspect]
     Route: 048
     Dates: start: 20041119, end: 20050117
  24. MYFORTIC [Suspect]
     Route: 048
     Dates: start: 20050307
  25. MYFORTIC [Suspect]
     Route: 048
     Dates: start: 20050426
  26. ACTONEL [Concomitant]
     Route: 048
     Dates: start: 20040908, end: 20041001
  27. ACTONEL [Concomitant]
     Route: 048
     Dates: start: 20041001, end: 20050426
  28. AMLODIPINE [Concomitant]
     Route: 048
     Dates: start: 20040922, end: 20050116
  29. AMPHOTERICIN B [Concomitant]
     Route: 061
     Dates: start: 20040920, end: 20041222
  30. ARANESP [Concomitant]
     Route: 058
     Dates: start: 20041001, end: 20041222
  31. AZATHIOPRIN [Concomitant]
     Route: 048
     Dates: start: 20050118, end: 20050306
  32. EUTHYROX [Concomitant]
     Route: 048
     Dates: start: 20040908
  33. FLUVASTATIN [Concomitant]
     Route: 048
     Dates: start: 20040907
  34. KEPINOL [Concomitant]
     Route: 048
     Dates: start: 20040908, end: 20050306
  35. MAGNESIUM SULFATE [Concomitant]
     Route: 048
     Dates: start: 20041008, end: 20041118
  36. METOPROLOL SUCCINATE [Concomitant]
     Route: 048
     Dates: start: 20041008
  37. METOPROLOL SUCCINATE [Concomitant]
     Route: 048
     Dates: start: 20050311
  38. NEORECORMON [Concomitant]
     Route: 042
     Dates: start: 20040813, end: 20040927
  39. REDUCTO [Concomitant]
     Dosage: FREQUENCY: PN
     Route: 048
     Dates: start: 20040921, end: 20050221
  40. TORSEMIDE [Concomitant]
     Route: 048
     Dates: start: 20050311
  41. AMPICILLIN AND SULBACTAM [Concomitant]
     Route: 042
     Dates: start: 20040906, end: 20040908
  42. UNACID PD [Concomitant]
     Route: 048
     Dates: start: 20040908, end: 20040928
  43. VALGANCICLOVIR HCL [Concomitant]
     Route: 048
     Dates: start: 20040910, end: 20040923
  44. VALGANCICLOVIR HCL [Concomitant]
     Route: 048
     Dates: start: 20040924, end: 20041206

REACTIONS (1)
  - BRONCHITIS [None]
